FAERS Safety Report 21578602 (Version 1)
Quarter: 2022Q4

REPORT INFORMATION
  Report Type: Spontaneous
  Country: IT (occurrence: IT)
  Receive Date: 20221110
  Receipt Date: 20221110
  Transmission Date: 20230113
  Serious: Yes (Other)
  Sender: FDA-Public Use
  Company Number: None

PATIENT
  Age: 75 Year
  Sex: Female

DRUGS (20)
  1. PANTOPRAZOLE [Interacting]
     Active Substance: PANTOPRAZOLE
     Indication: Gastrooesophageal reflux disease
     Dosage: UNIT DOSE : 40 MG
     Route: 065
  2. FUROSEMIDE [Interacting]
     Active Substance: FUROSEMIDE
     Indication: Hypertension
     Dosage: UNIT DOSE : 25 MG
     Route: 065
  3. SPIRONOLACTONE [Concomitant]
     Active Substance: SPIRONOLACTONE
     Indication: Product used for unknown indication
     Dosage: UNIT DOSE : 1 DOSAGE FORMS, FREQUENCY TIME : 1 DAYS,
  4. CRESTOR [Concomitant]
     Active Substance: ROSUVASTATIN CALCIUM
     Indication: Product used for unknown indication
     Dosage: UNIT DOSE : 20 MG, FREQUENCY TIME : 1 DAYS,
  5. PALEXIA [Concomitant]
     Active Substance: TAPENTADOL HYDROCHLORIDE
     Indication: Product used for unknown indication
     Dosage: UNIT DOSE : 50 MG, FREQUENCY TIME : 1 DAYS,
  6. FERRO [Concomitant]
     Indication: Product used for unknown indication
  7. PROLIA [Concomitant]
     Active Substance: DENOSUMAB
     Indication: Product used for unknown indication
     Dosage: UNIT DOSE : 60 MG, FREQUENCY TIME : 6 MONTHS,
  8. RIVOTRIL [Concomitant]
     Active Substance: CLONAZEPAM
     Indication: Product used for unknown indication
     Dosage: UNIT DOSE : 10 GTT, FREQUENCY TIME : 1 DAYS,
  9. LACTULOSE [Concomitant]
     Active Substance: LACTULOSE
     Indication: Product used for unknown indication
     Dosage: UNIT DOSE : 10 ML, FREQUENCY TIME : 1 DAYS,
  10. VITAMINA D [Concomitant]
     Indication: Product used for unknown indication
     Dosage: UNIT DOSE : 25000 IU, FREQUENCY TIME : 1 WEEKS
  11. SERTRALINE [Concomitant]
     Active Substance: SERTRALINE HYDROCHLORIDE
     Indication: Product used for unknown indication
     Dosage: UNIT DOSE : 25 MG, FREQUENCY TIME : 1 DAYS,
  12. LUMIGAN [Concomitant]
     Active Substance: BIMATOPROST
     Indication: Product used for unknown indication
     Dosage: UNIT DOSE : 1 GTT
  13. METOPROLOLO [Concomitant]
     Indication: Product used for unknown indication
     Dosage: UNIT DOSE : 125 MG, FREQUENCY TIME : 1 DAYS,
  14. TEGRETOL [Concomitant]
     Active Substance: CARBAMAZEPINE
     Indication: Product used for unknown indication
     Dosage: UNIT DOSE : 900 MG, FREQUENCY TIME : 1 DAYS,
  15. FOLIC ACID [Concomitant]
     Active Substance: FOLIC ACID
     Indication: Product used for unknown indication
     Dosage: UNIT DOSE : 5 MG, FREQUENCY TIME : 1 DAYS,
  16. EDOXABAN [Concomitant]
     Active Substance: EDOXABAN
     Indication: Product used for unknown indication
  17. RANOLAZINE [Concomitant]
     Active Substance: RANOLAZINE
     Indication: Product used for unknown indication
     Dosage: UNIT DOSE : 750 MG, FREQUENCY TIME : 1 DAYS,
  18. CACIT [Concomitant]
     Indication: Product used for unknown indication
     Dosage: UNIT DOSE : 1 DOSAGE FORMS, FREQUENCY TIME : 1 DAYS,
  19. ALLOPURINOL [Concomitant]
     Active Substance: ALLOPURINOL
     Indication: Product used for unknown indication
     Dosage: UNIT DOSE : 1 DOSAGE FORMS, FREQUENCY TIME : 1 DAYS,
  20. HYDROCHLOROTHIAZIDE\TELMISARTAN [Concomitant]
     Active Substance: HYDROCHLOROTHIAZIDE\TELMISARTAN
     Indication: Product used for unknown indication

REACTIONS (2)
  - Hypokalaemia [Unknown]
  - Drug interaction [Unknown]

NARRATIVE: CASE EVENT DATE: 20220430
